FAERS Safety Report 9797345 (Version 1)
Quarter: 2014Q1

REPORT INFORMATION
  Report Type: Spontaneous
  Country: US (occurrence: US)
  Receive Date: 20140106
  Receipt Date: 20140106
  Transmission Date: 20141002
  Serious: No
  Sender: FDA-Public Use
  Company Number: US-BIOGENIDEC-2014BI000361

PATIENT
  Age: 36 Year
  Sex: Female

DRUGS (3)
  1. TYSABRI [Suspect]
     Indication: MULTIPLE SCLEROSIS
     Route: 042
     Dates: start: 20131223
  2. TYLENOL [Concomitant]
     Indication: PREMEDICATION
     Dates: start: 20131223, end: 20131223
  3. CLARITIN [Concomitant]
     Indication: PREMEDICATION
     Dates: start: 20131223, end: 20131223

REACTIONS (6)
  - Palpitations [Not Recovered/Not Resolved]
  - Throat tightness [Recovered/Resolved]
  - Dysphagia [Unknown]
  - Decreased appetite [Not Recovered/Not Resolved]
  - Dizziness [Not Recovered/Not Resolved]
  - Dyspnoea [Not Recovered/Not Resolved]
